FAERS Safety Report 10240020 (Version 3)
Quarter: 2014Q3

REPORT INFORMATION
  Report Type: Spontaneous
  Country: PT (occurrence: PT)
  Receive Date: 20140616
  Receipt Date: 20140728
  Transmission Date: 20150326
  Serious: Yes (Other)
  Sender: FDA-Public Use
  Company Number: PT-JNJFOC-20140608099

PATIENT
  Age: 53 Year
  Sex: Female

DRUGS (6)
  1. DIFLUCAN [Suspect]
     Active Substance: FLUCONAZOLE
     Indication: GENITAL CANDIDIASIS
     Dosage: 300 MG (TWO 150 MG CAPSULES), SINGLE
     Route: 048
     Dates: start: 201402, end: 201402
  2. GYNO-PEVARYL [Suspect]
     Active Substance: ECONAZOLE NITRATE
     Indication: GENITAL CANDIDIASIS
     Route: 067
     Dates: start: 20140224
  3. ALL OTHER THERAPEUTIC PRODUCTS [Concomitant]
     Active Substance: UNSPECIFIED INGREDIENT
     Indication: TACHYCARDIA
     Route: 065
  4. HORMONE REPLACEMENT THERAPY [Concomitant]
     Active Substance: UNSPECIFIED INGREDIENT
     Indication: HYSTERECTOMY
     Route: 065
  5. DIFLUCAN [Suspect]
     Active Substance: FLUCONAZOLE
     Indication: GENITAL CANDIDIASIS
     Route: 048
     Dates: start: 20140224, end: 20140224
  6. RADIOACTIVE IODINE SOLUTION [Concomitant]
     Active Substance: SODIUM IODIDE I-131
     Indication: BENIGN NEOPLASM OF THYROID GLAND
     Route: 065
     Dates: start: 201402

REACTIONS (1)
  - Pathogen resistance [Not Recovered/Not Resolved]

NARRATIVE: CASE EVENT DATE: 20140530
